FAERS Safety Report 13032734 (Version 1)
Quarter: 2016Q4

REPORT INFORMATION
  Report Type: Spontaneous
  Country: US (occurrence: US)
  Receive Date: 20161215
  Receipt Date: 20161215
  Transmission Date: 20170207
  Serious: No
  Sender: FDA-Public Use
  Company Number: US-ALLERGAN-1673400US

PATIENT
  Sex: Female

DRUGS (1)
  1. VIBERZI [Suspect]
     Active Substance: ELUXADOLINE
     Indication: CONSTIPATION
     Dosage: 100 MG, QD
     Route: 048
     Dates: start: 20161006, end: 20161007

REACTIONS (6)
  - Urinary retention [Recovered/Resolved]
  - Peripheral swelling [Recovering/Resolving]
  - Abdominal discomfort [Recovered/Resolved]
  - Micturition urgency [Recovered/Resolved]
  - Off label use [Unknown]
  - Activities of daily living impaired [Recovered/Resolved]

NARRATIVE: CASE EVENT DATE: 20161006
